FAERS Safety Report 4626968-6 (Version None)
Quarter: 2005Q2

REPORT INFORMATION
  Report Type: 
  Country: None (occurrence: None)
  Receive Date: 20050405
  Receipt Date: 20050328
  Transmission Date: 20051028
  Serious: Yes (Other)
  Sender: FDA-Public Use
  Company Number: PHBS2005JP04364

PATIENT
  Age: 9 Year
  Sex: 0

DRUGS (1)
  1. TEGRETOL [Suspect]
     Dosage: 1200 MG/DAY
     Route: 048

REACTIONS (3)
  - DEPRESSED LEVEL OF CONSCIOUSNESS [None]
  - GASTRIC LAVAGE [None]
  - MEDICATION ERROR [None]
